FAERS Safety Report 13997906 (Version 1)
Quarter: 2017Q3

REPORT INFORMATION
  Report Type: Spontaneous
  Country: US (occurrence: US)
  Receive Date: 20170921
  Receipt Date: 20170921
  Transmission Date: 20171128
  Serious: Yes (Other)
  Sender: FDA-Public Use
  Company Number: None

PATIENT
  Age: 73 Year
  Sex: Male
  Weight: 85.05 kg

DRUGS (11)
  1. PROGRAF [Suspect]
     Active Substance: TACROLIMUS\TACROLIMUS ANHYDROUS
     Indication: RENAL TRANSPLANT
     Dosage: ?          QUANTITY:3 CAPSULE(S);?
     Route: 048
  2. LEVOTHYROXINE. [Concomitant]
     Active Substance: LEVOTHYROXINE
  3. MULTI VITAMIN [Concomitant]
     Active Substance: VITAMINS
  4. HUMALOG [Concomitant]
     Active Substance: INSULIN LISPRO
  5. LATANOPROST. [Concomitant]
     Active Substance: LATANOPROST
  6. LISINOPRIL. [Concomitant]
     Active Substance: LISINOPRIL
  7. WAFRIN [Suspect]
     Active Substance: WARFARIN
     Indication: DRUG THERAPY
     Dosage: ?          QUANTITY:2 TABLET(S);?
     Route: 048
     Dates: start: 20160316, end: 20160416
  8. PREDNISONE. [Concomitant]
     Active Substance: PREDNISONE
  9. PROGRAF [Concomitant]
     Active Substance: TACROLIMUS\TACROLIMUS ANHYDROUS
  10. COUMADIN [Concomitant]
     Active Substance: WARFARIN SODIUM
  11. MYFORTIC MYCOPHENOLATE ACID [Concomitant]

REACTIONS (4)
  - Product substitution issue [None]
  - Prothrombin time shortened [None]
  - Product quality issue [None]
  - Incorrect dose administered [None]

NARRATIVE: CASE EVENT DATE: 20160316
